FAERS Safety Report 20256672 (Version 2)
Quarter: 2022Q1

REPORT INFORMATION
  Report Type: Report from Study
  Country: US (occurrence: US)
  Receive Date: 20211230
  Receipt Date: 20220131
  Transmission Date: 20220423
  Serious: No
  Sender: FDA-Public Use
  Company Number: US-NOVARTISTESTPH-NVSC2021US299430

PATIENT
  Sex: Male

DRUGS (1)
  1. ENTRESTO [Suspect]
     Active Substance: SACUBITRIL\VALSARTAN
     Indication: Product used for unknown indication
     Dosage: 0.5 MG, BID (24/26MG)
     Route: 048
     Dates: start: 20211216

REACTIONS (4)
  - Weight increased [Unknown]
  - Headache [Unknown]
  - Dizziness postural [Unknown]
  - Incorrect dosage administered [Unknown]
